FAERS Safety Report 8367453 (Version 2)
Quarter: 2013Q1

REPORT INFORMATION
  Report Type: Report from Study
  Country: US (occurrence: US)
  Receive Date: 20120128
  Receipt Date: 20130130
  Transmission Date: 20140127
  Serious: No
  Sender: FDA-Public Use
  Company Number: US-ABBOTT-11P-163-0720825-00

PATIENT
  Sex: Female
  Weight: 83.08 kg

DRUGS (15)
  1. HUMIRA 40 MG/0.8 ML PEN [Suspect]
     Indication: RHEUMATOID ARTHRITIS
     Dates: start: 2007
  2. HUMIRA 40 MG/0.8 ML PEN [Suspect]
     Dates: start: 201102
  3. HUMIRA 40 MG/0.8 ML PEN [Suspect]
  4. HUMALOG [Concomitant]
     Indication: DIABETES MELLITUS
  5. TRAMADOL [Concomitant]
     Indication: PAIN
  6. LEFLUNOMIDE [Concomitant]
     Indication: RHEUMATOID ARTHRITIS
  7. LISINOPRIL [Concomitant]
     Indication: HYPERTENSION
  8. PREDNISONE [Concomitant]
     Indication: RHEUMATOID ARTHRITIS
  9. AMLODIPINE BESYLATE [Concomitant]
     Indication: HYPERTENSION
  10. FUROSEMIDE [Concomitant]
     Indication: OEDEMA PERIPHERAL
  11. BISOPROLOL [Concomitant]
     Indication: HYPERTENSION
  12. ADVIL [Concomitant]
     Indication: PAIN
  13. ADVIL [Concomitant]
     Indication: RHEUMATOID ARTHRITIS
  14. MELATONIN [Concomitant]
     Indication: INSOMNIA
  15. OSTEO BIFLEX [Concomitant]
     Indication: RHEUMATOID ARTHRITIS

REACTIONS (4)
  - Drug effect incomplete [Not Recovered/Not Resolved]
  - Drug effect incomplete [Not Recovered/Not Resolved]
  - Injection site pain [Not Recovered/Not Resolved]
  - Tinea pedis [Not Recovered/Not Resolved]
